FAERS Safety Report 4366975-4 (Version None)
Quarter: 2004Q2

REPORT INFORMATION
  Report Type: 
  Country: None (occurrence: None)
  Receive Date: 20040528
  Receipt Date: 20040429
  Transmission Date: 20050107
  Serious: Yes (Other)
  Sender: FDA-Public Use
  Company Number: PHEH2004US04806

PATIENT
  Age: 57 Year
  Sex: Female

DRUGS (7)
  1. ZOMETA [Suspect]
     Indication: METASTASES TO BONE
     Dosage: 4 MG, QMO
     Route: 042
     Dates: start: 20020926, end: 20040405
  2. TAMOXIFEN CITRATE [Concomitant]
     Indication: BREAST CANCER
     Dosage: 20 MG, QD
     Route: 048
     Dates: start: 19980624, end: 20011003
  3. NAVELBINE [Concomitant]
     Indication: BREAST CANCER
     Dosage: 45 MG, UNK
     Route: 042
     Dates: start: 20021008, end: 20030121
  4. FEMARA [Concomitant]
     Indication: METASTASES TO BONE
     Dosage: 2.5 MG, UNK
     Dates: start: 20030211, end: 20031007
  5. XELODA [Concomitant]
     Indication: METASTASES TO BONE
     Dosage: 1500 MG, BID
     Route: 048
     Dates: start: 20031007, end: 20040308
  6. TAXOL [Concomitant]
     Indication: METASTASES TO BONE
     Dosage: 140 MG, UNK
     Route: 042
     Dates: start: 20040421
  7. DECADRON [Concomitant]
     Dosage: 20 MG, UNK
     Dates: start: 20040421

REACTIONS (4)
  - JAW INFLAMMATION [None]
  - ORAL SURGERY [None]
  - OSTEOMYELITIS [None]
  - PURULENT DISCHARGE [None]
